FAERS Safety Report 10537692 (Version 1)
Quarter: 2014Q4

REPORT INFORMATION
  Report Type: Spontaneous
  Country: US (occurrence: None)
  Receive Date: 20141021
  Receipt Date: 20141021
  Transmission Date: 20150529
  Serious: Yes (Other)
  Sender: FDA-Public Use
  Company Number: 2014SCAL000186

PATIENT
  Age: 81 Year
  Sex: Female

DRUGS (9)
  1. QUETIAPINE [Concomitant]
     Active Substance: QUETIAPINE
  2. HYDROCHLOROTHIAZIDE. [Suspect]
     Active Substance: HYDROCHLOROTHIAZIDE
     Indication: HYPERTENSION
  3. VALSARTAN. [Concomitant]
     Active Substance: VALSARTAN
  4. ATORVASTATIN [Concomitant]
     Active Substance: ATORVASTATIN
  5. ASPIRIN. [Concomitant]
     Active Substance: ASPIRIN
  6. SENNA [Concomitant]
     Active Substance: SENNA LEAF\SENNOSIDES\SENNOSIDES A AND B
  7. CLONAZEPAM. [Concomitant]
     Active Substance: CLONAZEPAM
  8. AMLODIPINE [Concomitant]
     Active Substance: AMLODIPINE BESYLATE
  9. COLACE [Concomitant]
     Active Substance: DOCUSATE SODIUM

REACTIONS (4)
  - Decreased appetite [None]
  - Rash maculo-papular [None]
  - Weight decreased [None]
  - Subacute cutaneous lupus erythematosus [None]
